FAERS Safety Report 8398320-1 (Version None)
Quarter: 2012Q2

REPORT INFORMATION
  Report Type: 
  Country: None (occurrence: None)
  Receive Date: 20120531
  Receipt Date: 20120522
  Transmission Date: 20120825
  Serious: Yes (Other)
  Sender: FDA-Public Use
  Company Number: US-ASTRAZENECA-2012SE33146

PATIENT
  Age: 60 Year
  Sex: Male
  Weight: 136.5 kg

DRUGS (16)
  1. TAMSULOSIN HCL [Concomitant]
     Route: 048
  2. NEXIUM [Suspect]
     Route: 048
  3. NEURONTIN [Concomitant]
     Route: 048
  4. COUMADIN [Concomitant]
     Route: 048
  5. DIGOXIN [Concomitant]
     Route: 048
  6. KLOR-CON [Concomitant]
     Route: 048
  7. BUPROPION HCL [Concomitant]
     Route: 048
  8. MUCINEX [Concomitant]
     Route: 048
  9. GLIPIZIDE [Concomitant]
     Route: 048
  10. POTASSIUM CHLORIDE [Concomitant]
     Route: 048
  11. SIMVASTATIN [Concomitant]
     Route: 048
  12. LASIX [Concomitant]
     Route: 048
  13. OXAPROZIN [Concomitant]
     Route: 048
  14. ASPIRIN [Concomitant]
     Route: 048
  15. PRISTIQ [Concomitant]
     Route: 048
  16. METFORMIN HCL [Concomitant]
     Route: 048

REACTIONS (6)
  - ATRIAL FIBRILLATION [None]
  - AFFECTIVE DISORDER [None]
  - BENIGN PROSTATIC HYPERPLASIA [None]
  - MALAISE [None]
  - HYPERTENSION [None]
  - ARTERIOSCLEROSIS CORONARY ARTERY [None]
